FAERS Safety Report 7077518-9 (Version None)
Quarter: 2010Q4

REPORT INFORMATION
  Report Type: 
  Country: None (occurrence: None)
  Receive Date: 20101101
  Receipt Date: 20101021
  Transmission Date: 20110411
  Serious: Yes (Hospitalization)
  Sender: FDA-Public Use
  Company Number: SE-ASTRAZENECA-2010SE49892

PATIENT
  Age: 54 Year
  Sex: Male

DRUGS (10)
  1. SELOKEN ZOC [Suspect]
     Indication: ESSENTIAL HYPERTENSION
     Route: 048
  2. SELOKEN ZOC [Suspect]
     Route: 048
  3. ATACAND [Suspect]
     Indication: ESSENTIAL HYPERTENSION
     Route: 048
  4. ATACAND [Suspect]
     Route: 048
  5. OMEPRAZOLE [Concomitant]
  6. METFORMIN [Concomitant]
  7. LEVOTHYROXINE SODIUM [Concomitant]
  8. LOPID [Concomitant]
  9. NOVORAPID [Concomitant]
  10. LANTUS [Concomitant]

REACTIONS (1)
  - BLOOD CREATININE INCREASED [None]
